FAERS Safety Report 15134574 (Version 2)
Quarter: 2019Q4

REPORT INFORMATION
  Report Type: Report from Study
  Country: US (occurrence: US)
  Receive Date: 20180712
  Receipt Date: 20191014
  Transmission Date: 20200122
  Serious: Yes (Disabling, Other)
  Sender: FDA-Public Use
  Company Number: US-SA-2016SA053762

PATIENT
  Age: 71 Year
  Sex: Male

DRUGS (4)
  1. INSULIN GLARGINE [Suspect]
     Active Substance: INSULIN GLARGINE
     Dosage: UNK
  2. INSULIN GLARGINE [Suspect]
     Active Substance: INSULIN GLARGINE
     Indication: TYPE 2 DIABETES MELLITUS
     Dosage: 70 U, QD
     Route: 058
  3. INSULIN GLARGINE [Suspect]
     Active Substance: INSULIN GLARGINE
     Dosage: 85 U, QD
     Route: 058
  4. HUMALOG [Concomitant]
     Active Substance: INSULIN LISPRO

REACTIONS (12)
  - Hypoacusis [Recovered/Resolved]
  - Bronchitis [Recovered/Resolved]
  - Deafness [Not Recovered/Not Resolved]
  - Amnesia [Not Recovered/Not Resolved]
  - Disability [Not Recovered/Not Resolved]
  - Nasopharyngitis [Recovered/Resolved]
  - Blood glucose increased [Recovered/Resolved]
  - Arthralgia [Not Recovered/Not Resolved]
  - Gait disturbance [Not Recovered/Not Resolved]
  - Kidney infection [Recovered/Resolved]
  - Neuropathic arthropathy [Recovered/Resolved]
  - Blood glucose increased [Not Recovered/Not Resolved]
